FAERS Safety Report 22096763 (Version 1)
Quarter: 2023Q1

REPORT INFORMATION
  Report Type: Spontaneous
  Country: RU (occurrence: None)
  Receive Date: 20230315
  Receipt Date: 20230315
  Transmission Date: 20230418
  Serious: Yes (Hospitalization, Other)
  Sender: FDA-Public Use
  Company Number: RU-ROCHE-3305498

PATIENT
  Sex: Male

DRUGS (8)
  1. RITUXIMAB [Suspect]
     Active Substance: RITUXIMAB
     Indication: Follicular lymphoma
     Dosage: 375 MG/M2 - 709 MG IV DRIP, 4 CYCLES OF R-CHOP-14 CHEMOTHERAPY
     Route: 041
     Dates: start: 20190522, end: 20190820
  2. RITUXIMAB [Suspect]
     Active Substance: RITUXIMAB
     Route: 041
     Dates: start: 20190923, end: 20200810
  3. OBINUTUZUMAB [Suspect]
     Active Substance: OBINUTUZUMAB
     Indication: Follicular lymphoma
     Dosage: DROPPER ON DAY 1, 1ST CYCLE OF THERAPY, ON 26/NOV/2020-30/DEC/2020 OBINUTUZUMAB 1000 MG IV DRIP ON D
     Route: 042
     Dates: start: 20201030, end: 20201112
  4. CYCLOPHOSPHAMIDE [Suspect]
     Active Substance: CYCLOPHOSPHAMIDE
     Indication: Follicular lymphoma
     Dosage: 750 MG/M2 - 1418 MG, IV DRIP ON DAY 1, 4 CYCLES OF R-CHOP-14 CHEMOTHERAPY
     Route: 041
     Dates: start: 20190522, end: 20190820
  5. DOXORUBICIN [Suspect]
     Active Substance: DOXORUBICIN
     Indication: Follicular lymphoma
     Dosage: 50 MG/M2 - 95 MG, IV DRIP ON DAY 1; 4 CYCLES OF R-CHOP-14 CHEMOTHERAPY
     Route: 041
     Dates: start: 20190522, end: 20190820
  6. VINCRISTINE [Suspect]
     Active Substance: VINCRISTINE
     Indication: Follicular lymphoma
     Dosage: 1.4 MG/M2 - 2.0 MG, IV BOLUS ON DAY 1, 4 CYCLES OF R-CHOP-14 CHEMOTHERAPY
     Route: 041
     Dates: start: 20190522, end: 20190820
  7. PREDNISONE [Suspect]
     Active Substance: PREDNISONE
     Indication: Follicular lymphoma
     Dosage: 50 MG/M2-75 MG, FROM DAY 1 TO DAY 5, 4 CYCLES OF R-CHOP-14 CHEMOTHERAPY
     Route: 048
     Dates: start: 20190522, end: 20190820
  8. BENDAMUSTINE [Suspect]
     Active Substance: BENDAMUSTINE
     Indication: Follicular lymphoma
     Dosage: 90 MG/M2 -180 MG IV DROPPER ON DAYS 1, 8, AND 15, 1ST CYCLE OF THERAPY, ON 26/NOV/2020-30/DEC/2020,
     Route: 042
     Dates: start: 20201030, end: 20201112

REACTIONS (8)
  - Pneumonia [Unknown]
  - Coronavirus infection [Unknown]
  - Neutropenia [Unknown]
  - Follicular lymphoma [Unknown]
  - Hepatosplenomegaly [Unknown]
  - Pneumonia [Unknown]
  - Chronic sinusitis [Unknown]
  - Splenomegaly [Unknown]

NARRATIVE: CASE EVENT DATE: 20210319
